FAERS Safety Report 21425720 (Version 1)
Quarter: 2022Q4

REPORT INFORMATION
  Report Type: Spontaneous
  Country: DE (occurrence: DE)
  Receive Date: 20221008
  Receipt Date: 20221008
  Transmission Date: 20230112
  Serious: Yes (Hospitalization)
  Sender: FDA-Public Use
  Company Number: DE-ADRED-07825-01

PATIENT
  Age: 63 Year
  Sex: Female
  Weight: 70 kg

DRUGS (8)
  1. SUMATRIPTAN [Suspect]
     Active Substance: SUMATRIPTAN
     Indication: Product used for unknown indication
     Route: 048
  2. PANTOPRAZOLE [Concomitant]
     Active Substance: PANTOPRAZOLE
     Indication: Product used for unknown indication
     Dosage: 40 MG, 0-1-0-0
     Route: 048
  3. NEBIVOLOL [Concomitant]
     Active Substance: NEBIVOLOL
     Indication: Product used for unknown indication
     Dosage: 5 MG, 0.5-0-0.5-0
     Route: 048
  4. Atoris 40mg [Concomitant]
     Indication: Product used for unknown indication
     Dosage: 40 MG, 0-1-0-0
  5. MELPERONE [Concomitant]
     Active Substance: MELPERONE
     Indication: Product used for unknown indication
     Dosage: 50 MG, 0-0-0-1
     Route: 048
  6. AMITRIPTYLINE [Concomitant]
     Active Substance: AMITRIPTYLINE
     Indication: Product used for unknown indication
     Dosage: 50 MG, 0-0-0-1
     Route: 048
  7. Olmesartan-AbZ 10mg [Concomitant]
     Indication: Product used for unknown indication
     Dosage: 10 MG, 1-0-1-0
     Route: 048
  8. ASPIRIN [Concomitant]
     Active Substance: ASPIRIN
     Indication: Product used for unknown indication
     Dosage: 100 MG, 0-1-0-0
     Route: 048

REACTIONS (5)
  - Headache [Unknown]
  - Headache [Unknown]
  - Dizziness [Unknown]
  - Product prescribing error [Unknown]
  - Product prescribing error [Unknown]
